FAERS Safety Report 17271965 (Version 2)
Quarter: 2020Q1

REPORT INFORMATION
  Report Type: Spontaneous
  Country: US (occurrence: US)
  Receive Date: 20200115
  Receipt Date: 20200220
  Transmission Date: 20200409
  Serious: Yes (Other)
  Sender: FDA-Public Use
  Company Number: US-JNJFOC-20200110936

PATIENT
  Age: 15 Year
  Sex: Male
  Weight: 86.26 kg

DRUGS (1)
  1. INVEGA SUSTENNA [Suspect]
     Active Substance: PALIPERIDONE PALMITATE
     Indication: PSYCHOTIC DISORDER
     Route: 030
     Dates: start: 2019

REACTIONS (7)
  - Wrong technique in product usage process [Unknown]
  - Off label use [Unknown]
  - Liquid product physical issue [Unknown]
  - Product use issue [Unknown]
  - Syringe issue [Unknown]
  - Psychotic disorder [Not Recovered/Not Resolved]
  - Product dose omission [Unknown]

NARRATIVE: CASE EVENT DATE: 2019
